FAERS Safety Report 7988378-3 (Version None)
Quarter: 2011Q4

REPORT INFORMATION
  Report Type: 
  Country: None (occurrence: None)
  Receive Date: 20111216
  Receipt Date: 20111110
  Transmission Date: 20120403
  Serious: No
  Sender: FDA-Public Use
  Company Number: US-BAYER-2011-103455

PATIENT

DRUGS (3)
  1. BAYER AM EXTRA STRENGTH [Suspect]
     Indication: MENTAL IMPAIRMENT
  2. UNKNOWN PRESCRIPTION MEDICATION [Concomitant]
  3. BAYER AM EXTRA STRENGTH [Suspect]
     Indication: FIBROMYALGIA

REACTIONS (1)
  - THERAPEUTIC RESPONSE UNEXPECTED [None]
